FAERS Safety Report 6167291-0 (Version None)
Quarter: 2009Q2

REPORT INFORMATION
  Report Type: 
  Country: None (occurrence: None)
  Receive Date: 20090424
  Receipt Date: 20090415
  Transmission Date: 20091009
  Serious: Yes (Hospitalization)
  Sender: FDA-Public Use
  Company Number: US-PFIZER INC-2008001843

PATIENT
  Sex: Female
  Weight: 146 kg

DRUGS (19)
  1. NAPROXEN [Suspect]
     Indication: OSTEOARTHRITIS
     Route: 048
     Dates: start: 20071008, end: 20071211
  2. BLINDED *PLACEBO [Suspect]
     Indication: OSTEOARTHRITIS
     Route: 048
     Dates: start: 20071008, end: 20071211
  3. BLINDED CELECOXIB [Suspect]
     Indication: OSTEOARTHRITIS
     Route: 048
     Dates: start: 20071008, end: 20071211
  4. IBUPROFEN [Suspect]
     Indication: OSTEOARTHRITIS
     Route: 048
     Dates: start: 20071008, end: 20071211
  5. NAPROXEN [Suspect]
     Route: 048
     Dates: start: 20071008, end: 20071211
  6. NAPROXEN [Suspect]
     Indication: RHEUMATOID ARTHRITIS
  7. BLINDED *PLACEBO [Suspect]
     Indication: RHEUMATOID ARTHRITIS
  8. BLINDED CELECOXIB [Suspect]
     Indication: RHEUMATOID ARTHRITIS
  9. IBUPROFEN [Suspect]
     Indication: RHEUMATOID ARTHRITIS
  10. NAPROXEN [Suspect]
  11. NEXIUM [Concomitant]
     Route: 048
     Dates: start: 20071008, end: 20071211
  12. LISINOPRIL [Concomitant]
     Route: 048
     Dates: start: 20070521
  13. TRIVASTAN [Concomitant]
     Route: 048
     Dates: start: 20060719
  14. PAXIL CR [Concomitant]
     Route: 048
     Dates: start: 20060830
  15. FOSAMAX [Concomitant]
     Route: 048
     Dates: start: 19980305
  16. NORVASC [Concomitant]
     Route: 048
     Dates: start: 20000831
  17. METHOTREXATE [Concomitant]
     Route: 048
     Dates: start: 20010701
  18. FOLIC ACID [Concomitant]
     Route: 048
     Dates: start: 20010801
  19. VITAMIN D [Concomitant]
     Route: 048
     Dates: start: 20071114

REACTIONS (1)
  - GASTRITIS HAEMORRHAGIC [None]
